FAERS Safety Report 9797974 (Version 1)
Quarter: 2014Q1

REPORT INFORMATION
  Report Type: Spontaneous
  Country: US (occurrence: US)
  Receive Date: 20140106
  Receipt Date: 20140106
  Transmission Date: 20141002
  Serious: Yes (Other)
  Sender: FDA-Public Use
  Company Number: US-MERCK-1401USA000614

PATIENT
  Sex: Male

DRUGS (3)
  1. JANUVIA [Suspect]
     Dosage: UNK
     Route: 048
     Dates: start: 200809, end: 201110
  2. BYETTA [Suspect]
     Dosage: UNK
     Dates: start: 200511, end: 200806
  3. VICTOZA [Suspect]
     Dosage: UNK
     Dates: start: 201101, end: 201112

REACTIONS (1)
  - Thyroid cancer [Unknown]
